FAERS Safety Report 4589618-3 (Version None)
Quarter: 2005Q1

REPORT INFORMATION
  Report Type: 
  Country: None (occurrence: None)
  Receive Date: 20050217
  Receipt Date: 20050208
  Transmission Date: 20050727
  Serious: Yes (Hospitalization)
  Sender: FDA-Public Use
  Company Number: 2005-02-0343

PATIENT
  Sex: Male

DRUGS (1)
  1. TEMODAL [Suspect]
     Indication: MALIGNANT MELANOMA
     Dosage: ORAL
     Route: 048

REACTIONS (6)
  - ALANINE AMINOTRANSFERASE INCREASED [None]
  - BLOOD ALKALINE PHOSPHATASE INCREASED [None]
  - BLOOD BILIRUBIN INCREASED [None]
  - HYPERCALCAEMIA [None]
  - LIVER FUNCTION TEST ABNORMAL [None]
  - MALIGNANT NEOPLASM PROGRESSION [None]
